FAERS Safety Report 16923546 (Version 1)
Quarter: 2019Q4

REPORT INFORMATION
  Report Type: Spontaneous
  Country: US (occurrence: US)
  Receive Date: 20191016
  Receipt Date: 20191016
  Transmission Date: 20200122
  Serious: No
  Sender: FDA-Public Use
  Company Number: US-SUNOVION-2019SUN004132

PATIENT
  Age: 13 Year
  Sex: Female
  Weight: 47.6 kg

DRUGS (4)
  1. LATUDA [Suspect]
     Active Substance: LURASIDONE HYDROCHLORIDE
     Indication: MAJOR DEPRESSION
  2. LATUDA [Suspect]
     Active Substance: LURASIDONE HYDROCHLORIDE
     Indication: ANXIETY
     Dosage: 20 MG, QD
     Route: 048
     Dates: start: 20190927
  3. LITHIUM. [Concomitant]
     Active Substance: LITHIUM
     Dosage: 300 MG, QD
     Dates: start: 20190930
  4. LITHIUM. [Concomitant]
     Active Substance: LITHIUM
     Dosage: 600 MG, QD
     Dates: start: 20190926

REACTIONS (5)
  - Increased appetite [Unknown]
  - Off label use [Unknown]
  - Weight gain poor [Unknown]
  - Myalgia [Unknown]
  - Musculoskeletal pain [Unknown]

NARRATIVE: CASE EVENT DATE: 201909
